FAERS Safety Report 11604990 (Version 1)
Quarter: 2015Q4

REPORT INFORMATION
  Report Type: Spontaneous
  Country: FR (occurrence: FR)
  Receive Date: 20151007
  Receipt Date: 20151007
  Transmission Date: 20160304
  Serious: Yes (Life-Threatening, Hospitalization)
  Sender: FDA-Public Use
  Company Number: FR-PFIZER INC-2015330264

PATIENT
  Age: 36 Year
  Sex: Female

DRUGS (11)
  1. VFEND [Suspect]
     Active Substance: VORICONAZOLE
     Indication: BRONCHOPULMONARY ASPERGILLOSIS
     Dosage: 400 MG, 1X/DAY
     Route: 048
     Dates: start: 20141223, end: 20150807
  2. AVAMYS [Interacting]
     Active Substance: FLUTICASONE FUROATE
     Indication: ASTHMA
     Dosage: 2 DF, DAILY
     Route: 055
  3. TARDYFERON [Concomitant]
     Active Substance: FERROUS SULFATE\FOLIC ACID
     Dosage: 4 DF, 1X/DAY
     Route: 048
  4. SINGULAIR [Concomitant]
     Active Substance: MONTELUKAST SODIUM
     Indication: ASTHMA
     Dosage: 10 MG, 1X/DAY
     Route: 048
  5. VENTOLINE [Concomitant]
     Active Substance: ALBUTEROL
     Indication: ASTHMA
     Dosage: UNK UNK, AS NEEDED
     Route: 055
  6. AERIUS [Concomitant]
     Active Substance: DESLORATADINE
     Dosage: 5 MG, 1X/DAY
     Route: 048
  7. OGAST [Concomitant]
     Active Substance: LANSOPRAZOLE
     Dosage: 60 MG, 1X/DAY
     Route: 048
     Dates: start: 201406
  8. CLAIRYG [Concomitant]
     Active Substance: HUMAN IMMUNOGLOBULIN G
     Indication: IMMUNODEFICIENCY
  9. SERETIDE [Interacting]
     Active Substance: FLUTICASONE FUROATE\SALMETEROL XINAFOATE
     Indication: ASTHMA
     Dosage: 2 DF, DAILY
     Route: 055
  10. PULMICORT TURBUHALER [Interacting]
     Active Substance: BUDESONIDE
     Indication: ASTHMA
     Dosage: UNK, AS NEEDED
     Route: 055
  11. BIPROFENID [Concomitant]
     Active Substance: KETOPROFEN
     Route: 048

REACTIONS (2)
  - Adrenal insufficiency [Recovered/Resolved]
  - Drug interaction [Recovered/Resolved]

NARRATIVE: CASE EVENT DATE: 20150822
